FAERS Safety Report 5808279-6 (Version None)
Quarter: 2008Q3

REPORT INFORMATION
  Report Type: 
  Country: None (occurrence: None)
  Receive Date: 20080709
  Receipt Date: 20080701
  Transmission Date: 20090109
  Serious: Yes (Hospitalization, Other)
  Sender: FDA-Public Use
  Company Number: 2007SP020199

PATIENT
  Age: 57 Year
  Sex: Male

DRUGS (1)
  1. PEG-INTRON [Suspect]
     Indication: HEPATITIS C
     Dosage: ;SC
     Route: 058
     Dates: start: 20070709, end: 20071001

REACTIONS (12)
  - ASTHENIA [None]
  - BONE MARROW DISORDER [None]
  - FLUID RETENTION [None]
  - HEPATIC NEOPLASM MALIGNANT [None]
  - INFLUENZA LIKE ILLNESS [None]
  - LIVER TRANSPLANT [None]
  - MEMORY IMPAIRMENT [None]
  - OEDEMA PERIPHERAL [None]
  - PERITONITIS [None]
  - PYREXIA [None]
  - SWELLING [None]
  - WEIGHT INCREASED [None]
